FAERS Safety Report 24727709 (Version 1)
Quarter: 2024Q4

REPORT INFORMATION
  Report Type: Spontaneous
  Country: CN (occurrence: CN)
  Receive Date: 20241212
  Receipt Date: 20241212
  Transmission Date: 20250115
  Serious: Yes (Hospitalization, Other)
  Sender: MERCK
  Company Number: CN-009507513-2412CHN001788

PATIENT
  Age: 53 Year
  Sex: Male
  Weight: 60 kg

DRUGS (6)
  1. PEMBROLIZUMAB [Suspect]
     Active Substance: PEMBROLIZUMAB
     Indication: Lung adenocarcinoma
     Dosage: 100 MILLIGRAM, Q3WFOR SEVER CYCLES
  2. PEMBROLIZUMAB [Suspect]
     Active Substance: PEMBROLIZUMAB
     Dosage: UNKNOWN FOR SEVEN CYCLES
  3. PEMBROLIZUMAB [Suspect]
     Active Substance: PEMBROLIZUMAB
     Dosage: 200 MILLIGRAM, EVERY 4 WEEKS
  4. PEMETREXED [Concomitant]
     Active Substance: PEMETREXED
     Indication: Lung adenocarcinoma
     Dosage: UNKNOWN FOR SEVER CYCLES
  5. PEMETREXED [Concomitant]
     Active Substance: PEMETREXED
     Dosage: UNKNOWN FOR SEVER CYCLES
  6. NEDAPLATIN [Concomitant]
     Active Substance: NEDAPLATIN
     Indication: Lung adenocarcinoma
     Dosage: UNKNOWN FOR SEVER CYCLES

REACTIONS (5)
  - Acute respiratory distress syndrome [Recovered/Resolved]
  - Interstitial lung disease [Recovered/Resolved]
  - Product use issue [Unknown]
  - Underdose [Unknown]
  - Inappropriate schedule of product administration [Unknown]
